FAERS Safety Report 9592257 (Version 1)
Quarter: 2013Q4

REPORT INFORMATION
  Report Type: Report from Study
  Country: ES (occurrence: ES)
  Receive Date: 20131004
  Receipt Date: 20131004
  Transmission Date: 20140711
  Serious: Yes (Life-Threatening, Hospitalization)
  Sender: FDA-Public Use
  Company Number: ES-ROCHE-1283571

PATIENT
  Age: 48 Year
  Sex: Male

DRUGS (7)
  1. MYCOPHENOLATE MOFETIL [Suspect]
     Indication: HEART TRANSPLANT
     Route: 048
     Dates: start: 201205, end: 20121117
  2. MYCOPHENOLATE MOFETIL [Suspect]
     Route: 048
  3. VALGANCICLOVIR [Suspect]
     Indication: CYTOMEGALOVIRUS INFECTION
     Route: 048
     Dates: start: 20121009, end: 20121120
  4. CYCLOSPORINE [Suspect]
     Indication: HEART TRANSPLANT
     Route: 048
     Dates: start: 201205
  5. SULFAMETHOXAZOLE/TRIMETHOPRIM [Suspect]
     Indication: PROPHYLAXIS
     Route: 048
     Dates: start: 20120604, end: 20121120
  6. PREDNISONE [Concomitant]
     Indication: HEART TRANSPLANT
     Route: 048
     Dates: start: 201205, end: 20121117
  7. SIMVASTATIN [Concomitant]
     Indication: HYPERLIPIDAEMIA
     Route: 048
     Dates: start: 201205, end: 20121117

REACTIONS (1)
  - Agranulocytosis [Recovered/Resolved]
